FAERS Safety Report 5412533-X (Version None)
Quarter: 2007Q3

REPORT INFORMATION
  Report Type: 
  Country: None (occurrence: None)
  Receive Date: 20070813
  Receipt Date: 20070807
  Transmission Date: 20080115
  Serious: Yes (Hospitalization)
  Sender: FDA-Public Use
  Company Number: B0478074A

PATIENT
  Age: 4 Year
  Weight: 15.5 kg

DRUGS (1)
  1. ZOVIRAX [Suspect]
     Indication: VARICELLA
     Route: 048
     Dates: start: 20070627, end: 20070629

REACTIONS (8)
  - DRUG ERUPTION [None]
  - FACE OEDEMA [None]
  - GENERALISED ERYTHEMA [None]
  - OEDEMA MOUTH [None]
  - OEDEMA PERIPHERAL [None]
  - PRURITUS [None]
  - RASH [None]
  - STOMATITIS [None]
